FAERS Safety Report 7155795-3 (Version None)
Quarter: 2010Q4

REPORT INFORMATION
  Report Type: 
  Country: None (occurrence: None)
  Receive Date: 20101123
  Receipt Date: 20100726
  Transmission Date: 20110411
  Serious: No
  Sender: FDA-Public Use
  Company Number: 008661

PATIENT
  Sex: Female

DRUGS (4)
  1. CIMZIA [Suspect]
     Indication: CROHN'S DISEASE
     Dosage: (400 MG 1X/2 WEEK, SUBCUTANEOUS); (200 MG 1X/2 WEEK, SUBCUTANEOUS)
     Route: 057
     Dates: start: 20090217
  2. CIMZIA [Suspect]
  3. IMURAN [Concomitant]
  4. FLAGYL [Concomitant]

REACTIONS (2)
  - ANAEMIA [None]
  - HAEMATOCHEZIA [None]
